FAERS Safety Report 4979149-0 (Version None)
Quarter: 2006Q2

REPORT INFORMATION
  Report Type: 
  Country: None (occurrence: None)
  Receive Date: 20060421
  Receipt Date: 20060413
  Transmission Date: 20061013
  Serious: Yes (Hospitalization)
  Sender: FDA-Public Use
  Company Number: CH-AVENTIS-200613932GDDC

PATIENT
  Age: 76 Year
  Sex: Female

DRUGS (6)
  1. ARAVA [Suspect]
     Indication: RHEUMATOID ARTHRITIS
     Route: 048
     Dates: start: 20050616, end: 20050916
  2. METHOTREXATE [Suspect]
  3. MARCOUMAR [Concomitant]
     Indication: PULMONARY EMBOLISM
     Dates: start: 20000101
  4. FOSAMAX [Concomitant]
     Indication: OSTEOPOROSIS
     Route: 048
     Dates: start: 20000101
  5. ELTROXIN [Concomitant]
     Indication: HYPOTHYROIDISM
     Route: 048
  6. PANTOZOL [Concomitant]
     Route: 048
     Dates: start: 20050912

REACTIONS (2)
  - DIARRHOEA [None]
  - HALLUCINATION [None]
